FAERS Safety Report 4896326-8 (Version None)
Quarter: 2006Q1

REPORT INFORMATION
  Report Type: 
  Country: None (occurrence: None)
  Receive Date: 20060126
  Receipt Date: 20060116
  Transmission Date: 20060701
  Serious: Yes (Other)
  Sender: FDA-Public Use
  Company Number: 2005-09-1554

PATIENT
  Age: 67 Year
  Sex: Male
  Weight: 56 kg

DRUGS (1)
  1. VIRAFERONPEG [Suspect]
     Indication: HEPATITIS C
     Dosage: 40  UG QW SUBCUTANEOUS
     Route: 058
     Dates: start: 20050801, end: 20050927

REACTIONS (6)
  - ATRIOVENTRICULAR BLOCK [None]
  - DISEASE RECURRENCE [None]
  - EPILEPSY [None]
  - HEPATITIS C [None]
  - LOSS OF CONSCIOUSNESS [None]
  - SYNCOPE [None]
